FAERS Safety Report 7333260-8 (Version None)
Quarter: 2011Q1

REPORT INFORMATION
  Report Type: 
  Country: None (occurrence: None)
  Receive Date: 20110222
  Receipt Date: 20110207
  Transmission Date: 20110831
  Serious: Yes (Hospitalization, Other)
  Sender: FDA-Public Use
  Company Number: 2011AP000117

PATIENT
  Age: 60 Year
  Sex: Female

DRUGS (11)
  1. ASPIRIN [Suspect]
     Indication: PRODUCT USED FOR UNKNOWN INDICATION
     Dosage: 75 MG; QD
  2. ATENOLOL [Suspect]
     Indication: PRODUCT USED FOR UNKNOWN INDICATION
     Dosage: 25 MG; QD
  3. DOSULEPIN (DOSULEPIN) [Suspect]
     Indication: DEPRESSION
     Dosage: 50 MG; QD
  4. PROMETHAZINE [Suspect]
     Indication: ANXIETY
     Dosage: 50 MG; HS
  5. PROMETHAZINE [Suspect]
     Indication: SLEEP DISORDER
     Dosage: 50 MG; HS
  6. LYRICA [Suspect]
     Indication: GENERALISED ANXIETY DISORDER
     Dosage: (50 MG; TID) (100 MG; TID) (200 MG)
  7. ZOPICLONE (ZOPICLONE) [Suspect]
     Indication: SLEEP DISORDER
     Dosage: 3.75 MG; HS
  8. CITALOPRAM (CITALOPRAM) [Suspect]
     Indication: PRODUCT USED FOR UNKNOWN INDICATION
  9. SIMVASTATIN [Suspect]
     Indication: PRODUCT USED FOR UNKNOWN INDICATION
     Dosage: 20 MG; QD
  10. SERTRALINE (SERTRALINE) [Suspect]
     Indication: PRODUCT USED FOR UNKNOWN INDICATION
     Dosage: (100 MG; QD) (150 MG)
  11. DIAZEPAM [Suspect]
     Indication: PRODUCT USED FOR UNKNOWN INDICATION

REACTIONS (40)
  - MIDDLE INSOMNIA [None]
  - ANAEMIA [None]
  - DEPRESSION [None]
  - DIARRHOEA [None]
  - PANIC ATTACK [None]
  - MACROCYTOSIS [None]
  - ORAL MUCOSAL DISCOLOURATION [None]
  - THINKING ABNORMAL [None]
  - DECREASED APPETITE [None]
  - ORAL DISCOMFORT [None]
  - MYALGIA [None]
  - MULTIPLE DRUG OVERDOSE [None]
  - AGGRESSION [None]
  - SYNCOPE [None]
  - HYPOCHONDRIASIS [None]
  - HYPERHIDROSIS [None]
  - MALAISE [None]
  - NAUSEA [None]
  - FEELING JITTERY [None]
  - IRRITABILITY [None]
  - ANXIETY [None]
  - CONFUSIONAL STATE [None]
  - MUSCLE ATROPHY [None]
  - URINARY TRACT INFECTION [None]
  - WEIGHT DECREASED [None]
  - TENSION [None]
  - SUICIDAL IDEATION [None]
  - OVERDOSE [None]
  - DEPRESSED LEVEL OF CONSCIOUSNESS [None]
  - AFFECTIVE DISORDER [None]
  - INITIAL INSOMNIA [None]
  - SOMATOFORM DISORDER [None]
  - ADJUSTMENT DISORDER [None]
  - FALL [None]
  - DIZZINESS [None]
  - LETHARGY [None]
  - MUSCLE TWITCHING [None]
  - TREMOR [None]
  - PAIN [None]
  - VOMITING [None]
